FAERS Safety Report 10895732 (Version 2)
Quarter: 2015Q2

REPORT INFORMATION
  Report Type: Report from Study
  Country: DE (occurrence: DE)
  Receive Date: 20150307
  Receipt Date: 20150423
  Transmission Date: 20150821
  Serious: Yes (Hospitalization)
  Sender: FDA-Public Use
  Company Number: DE-ABBVIE-15K-062-1355845-00

PATIENT
  Age: 54 Year
  Sex: Male
  Weight: 69.2 kg

DRUGS (13)
  1. SIMVASTATIN. [Concomitant]
     Active Substance: SIMVASTATIN
     Indication: PRODUCT USED FOR UNKNOWN INDICATION
     Dosage: 1-0-0.5-0
  2. TRAMAL RETARD [Concomitant]
     Active Substance: TRAMADOL
     Indication: PRODUCT USED FOR UNKNOWN INDICATION
     Dosage: 0-0-1-0
  3. HUMIRA [Suspect]
     Active Substance: ADALIMUMAB
     Route: 058
     Dates: start: 20101208, end: 20141216
  4. PANTOZOL [Concomitant]
     Active Substance: PANTOPRAZOLE SODIUM
     Indication: PRODUCT USED FOR UNKNOWN INDICATION
  5. HUMIRA [Suspect]
     Active Substance: ADALIMUMAB
     Indication: RHEUMATOID ARTHRITIS
     Route: 058
     Dates: start: 2007
  6. PANTOZOL [Concomitant]
     Active Substance: PANTOPRAZOLE SODIUM
     Dosage: OVER SIX WEEKS
  7. BISOHEXAL [Concomitant]
     Active Substance: BISOPROLOL FUMARATE
     Indication: PRODUCT USED FOR UNKNOWN INDICATION
  8. MTX [Concomitant]
     Active Substance: METHOTREXATE SODIUM
     Indication: PRODUCT USED FOR UNKNOWN INDICATION
     Dates: start: 201412
  9. PREDNISOLON [Concomitant]
     Active Substance: PREDNISOLONE
     Indication: PRODUCT USED FOR UNKNOWN INDICATION
     Dosage: 1-0-0-0
  10. ALLOPURINOL. [Concomitant]
     Active Substance: ALLOPURINOL
     Indication: PRODUCT USED FOR UNKNOWN INDICATION
     Dosage: 0-0-1-0, THERAPY PAUSED
  11. SIMVASTATIN. [Concomitant]
     Active Substance: SIMVASTATIN
     Dosage: 0-0-1-0
  12. BISOPROLOL [Concomitant]
     Active Substance: BISOPROLOL
     Indication: PRODUCT USED FOR UNKNOWN INDICATION
     Dosage: 1-0-0.5-0
  13. FOLIC ACID. [Concomitant]
     Active Substance: FOLIC ACID
     Indication: PRODUCT USED FOR UNKNOWN INDICATION
     Dosage: 1-0-0-0

REACTIONS (23)
  - Pancreatic disorder [Recovering/Resolving]
  - Pyrexia [Unknown]
  - Waist circumference increased [Unknown]
  - Biliary ascites [Recovering/Resolving]
  - Pancreatitis acute [Recovering/Resolving]
  - Osteochondrosis [Unknown]
  - Pancreatic duct dilatation [Unknown]
  - Normochromic normocytic anaemia [Recovering/Resolving]
  - Enteritis [Unknown]
  - Atelectasis [Unknown]
  - Cholangitis [Unknown]
  - Pancreatic duct stenosis [Recovering/Resolving]
  - Gastritis [Recovering/Resolving]
  - Diverticulum [Unknown]
  - Renal disorder [Unknown]
  - Hepatic steatosis [Unknown]
  - Pancreatic cyst [Recovering/Resolving]
  - Thrombocytosis [Recovering/Resolving]
  - Inflammatory marker increased [Recovering/Resolving]
  - Cholelithiasis [Recovering/Resolving]
  - Pleural effusion [Recovering/Resolving]
  - Sinus tachycardia [Unknown]
  - Spondylolisthesis [Unknown]

NARRATIVE: CASE EVENT DATE: 201412
